FAERS Safety Report 6488223-1 (Version None)
Quarter: 2009Q4

REPORT INFORMATION
  Report Type: 
  Country: None (occurrence: None)
  Receive Date: 20091210
  Receipt Date: 20091203
  Transmission Date: 20100525
  Serious: Yes (Hospitalization)
  Sender: FDA-Public Use
  Company Number: B0610701A

PATIENT
  Sex: Male

DRUGS (3)
  1. MALARONE [Suspect]
     Dates: start: 20070826, end: 20070915
  2. SYNTOMETRINE [Suspect]
     Dates: start: 20080510, end: 20080510
  3. YELLOW FEVER VACCINE [Suspect]
     Dates: start: 20070806, end: 20070806

REACTIONS (5)
  - BACTERIAL SEPSIS [None]
  - HAEMANGIOMA [None]
  - NEONATAL RESPIRATORY DISTRESS SYNDROME [None]
  - PNEUMONIA [None]
  - PNEUMOTHORAX [None]
